FAERS Safety Report 7090251-2 (Version None)
Quarter: 2010Q4

REPORT INFORMATION
  Report Type: 
  Country: None (occurrence: None)
  Receive Date: 20101109
  Receipt Date: 20101104
  Transmission Date: 20110411
  Serious: Yes (Life-Threatening, Hospitalization)
  Sender: FDA-Public Use
  Company Number: CH-ASTRAZENECA-2010SE52516

PATIENT
  Age: 69 Year
  Sex: Male
  Weight: 93 kg

DRUGS (14)
  1. SEROQUEL XR [Suspect]
     Indication: PERSONALITY DISORDER
     Route: 048
     Dates: start: 20090101, end: 20101006
  2. HALDOL [Suspect]
     Indication: PERSONALITY DISORDER
     Route: 030
     Dates: start: 20101007, end: 20101008
  3. HALDOL [Suspect]
     Route: 030
     Dates: start: 20101008
  4. RISPERDAL [Suspect]
     Indication: PERSONALITY DISORDER
     Route: 048
     Dates: start: 20101008
  5. RISPERDAL [Suspect]
     Route: 048
     Dates: start: 20101009, end: 20101011
  6. CITALOPRAM HYDROBROMIDE [Suspect]
     Route: 048
     Dates: start: 20090101
  7. TRAMADOL HCL [Suspect]
     Indication: PAIN
     Dosage: 20 DROPS 4X/DAY
     Route: 048
     Dates: start: 20100201
  8. TRAMADOL HCL [Suspect]
     Dosage: 8 DROPS/DAY
     Route: 048
     Dates: start: 20100908
  9. DISTRANEURIN [Concomitant]
     Route: 048
     Dates: start: 20090101, end: 20101001
  10. LISINOPRIL [Concomitant]
     Indication: ESSENTIAL HYPERTENSION
     Route: 048
     Dates: start: 20090101
  11. PLENDIL [Concomitant]
     Indication: ESSENTIAL HYPERTENSION
     Route: 048
     Dates: start: 20101012
  12. TORASEMID [Concomitant]
     Indication: ESSENTIAL HYPERTENSION
     Route: 048
     Dates: start: 20090101
  13. DAFALGAN [Concomitant]
     Route: 048
     Dates: start: 20090101
  14. NEOTIGASON [Concomitant]
     Route: 048
     Dates: start: 20100101

REACTIONS (8)
  - ABDOMINAL PAIN [None]
  - CONFUSIONAL STATE [None]
  - DYSARTHRIA [None]
  - NYSTAGMUS [None]
  - PARAESTHESIA [None]
  - PARALYSIS [None]
  - TRANSIENT ISCHAEMIC ATTACK [None]
  - VOMITING [None]
